FAERS Safety Report 18679602 (Version 1)
Quarter: 2020Q4

REPORT INFORMATION
  Report Type: Spontaneous
  Country: CO (occurrence: CO)
  Receive Date: 20201230
  Receipt Date: 20201230
  Transmission Date: 20210114
  Serious: Yes (Other)
  Sender: FDA-Public Use
  Company Number: CO-SA-2020SA331236

PATIENT

DRUGS (4)
  1. ALPROLIX [Suspect]
     Active Substance: EFTRENONACOG ALFA
     Indication: FACTOR IX DEFICIENCY
     Dosage: UNK
     Dates: start: 20200919
  2. ALPROLIX [Suspect]
     Active Substance: EFTRENONACOG ALFA
     Dosage: 42.2 IU/KG (3000 IU), Q10D
     Route: 042
     Dates: start: 20201102
  3. ALPROLIX [Suspect]
     Active Substance: EFTRENONACOG ALFA
     Indication: FACTOR IX DEFICIENCY
     Dosage: UNK
     Dates: start: 20200919
  4. ALPROLIX [Suspect]
     Active Substance: EFTRENONACOG ALFA
     Dosage: 42.2 IU/KG (3000 IU), Q10D
     Route: 042
     Dates: start: 20201102

REACTIONS (12)
  - Pruritus [Unknown]
  - Haematoma [Unknown]
  - Arthralgia [Unknown]
  - Gingival bleeding [Unknown]
  - Flushing [Unknown]
  - Petechiae [Unknown]
  - Mouth haemorrhage [Unknown]
  - Application site pruritus [Unknown]
  - Haemorrhage [Unknown]
  - Oedema [Unknown]
  - Epistaxis [Unknown]
  - Rash papular [Unknown]

NARRATIVE: CASE EVENT DATE: 202011
